FAERS Safety Report 12527118 (Version 2)
Quarter: 2016Q4

REPORT INFORMATION
  Report Type: Spontaneous
  Country: US (occurrence: US)
  Receive Date: 20160705
  Receipt Date: 20161111
  Transmission Date: 20170207
  Serious: No
  Sender: FDA-Public Use
  Company Number: US-GLAXOSMITHKLINE-US2016093965

PATIENT
  Age: 58 Year
  Sex: Male

DRUGS (1)
  1. ALLI [Suspect]
     Active Substance: ORLISTAT
     Indication: WEIGHT CONTROL
     Dosage: UNK (CAPSULES FROM THE FIRST BOTTLE FOR ABOUT TWO WEEKS)

REACTIONS (2)
  - Drug ineffective [Unknown]
  - Steatorrhoea [Unknown]
